FAERS Safety Report 5120151-6 (Version None)
Quarter: 2006Q3

REPORT INFORMATION
  Report Type: 
  Country: None (occurrence: None)
  Receive Date: 20060928
  Receipt Date: 20060913
  Transmission Date: 20061208
  Serious: Yes (Hospitalization)
  Sender: FDA-Public Use
  Company Number: 14799

PATIENT
  Age: 55 Year
  Sex: Female

DRUGS (3)
  1. PACLITAXEL [Suspect]
  2. CARBOPLATIN [Suspect]
  3. DMXAA [Suspect]
     Indication: OVARIAN EPITHELIAL CANCER RECURRENT
     Dosage: 2880 MG IV
     Route: 042
     Dates: start: 20060217, end: 20060525

REACTIONS (1)
  - PANCYTOPENIA [None]
